FAERS Safety Report 4478673-7 (Version None)
Quarter: 2004Q4

REPORT INFORMATION
  Report Type: 
  Country: None (occurrence: None)
  Receive Date: 20040923
  Receipt Date: 20040602
  Transmission Date: 20050328
  Serious: No
  Sender: FDA-Public Use
  Company Number: USA040669154

PATIENT
  Age: 87 Year
  Sex: Female

DRUGS (3)
  1. FORTEO [Suspect]
     Indication: OSTEOPOROSIS
     Dates: start: 20030901
  2. BLOOD PRESSURE MEDICATIONS [Concomitant]
  3. ASPIRIN [Concomitant]

REACTIONS (2)
  - BACK PAIN [None]
  - DIFFICULTY IN WALKING [None]
